FAERS Safety Report 5266648-X (Version None)
Quarter: 2007Q1

REPORT INFORMATION
  Report Type: 
  Country: None (occurrence: None)
  Receive Date: 20070312
  Receipt Date: 20070226
  Transmission Date: 20070707
  Serious: Yes (Other)
  Sender: FDA-Public Use
  Company Number: 2007SP003573

PATIENT

DRUGS (1)
  1. AERIUS (DESLORADADINE)  (DESLORATADINE) [Suspect]
     Indication: URTICARIA
     Dosage: TID
     Dates: start: 20040101

REACTIONS (2)
  - CORONARY ARTERY DISEASE [None]
  - DYSPNOEA [None]
